FAERS Safety Report 20718227 (Version 3)
Quarter: 2023Q1

REPORT INFORMATION
  Report Type: Spontaneous
  Country: US (occurrence: US)
  Receive Date: 20220418
  Receipt Date: 20230116
  Transmission Date: 20230417
  Serious: Yes (Hospitalization)
  Sender: FDA-Public Use
  Company Number: US-SA-SAC20220414001383

PATIENT
  Age: 66 Year
  Sex: Male

DRUGS (34)
  1. FABRAZYME [Suspect]
     Active Substance: AGALSIDASE BETA
     Indication: Fabry^s disease
     Dosage: 90 MG, QOW
     Route: 042
     Dates: start: 20220225
  2. VITAMIN D3 [Concomitant]
     Active Substance: CHOLECALCIFEROL
  3. ACETAMINOPHEN [Concomitant]
     Active Substance: ACETAMINOPHEN
  4. DIPHENHYDRAMINE [Concomitant]
     Active Substance: DIPHENHYDRAMINE
  5. HEPARIN [Concomitant]
     Active Substance: HEPARIN SODIUM
  6. SODIUM CHLORIDE [Concomitant]
     Active Substance: SODIUM CHLORIDE
  7. STERILE WATER [Concomitant]
     Active Substance: WATER
  8. EPINEPHRINE [Concomitant]
     Active Substance: EPINEPHRINE
  9. LATANOPROST [Concomitant]
     Active Substance: LATANOPROST
  10. TRAZODONE [Concomitant]
     Active Substance: TRAZODONE HYDROCHLORIDE
  11. PLAVIX [Concomitant]
     Active Substance: CLOPIDOGREL BISULFATE
  12. TORSEMIDE [Concomitant]
     Active Substance: TORSEMIDE
  13. ELIQUIS [Concomitant]
     Active Substance: APIXABAN
  14. TAMSULOSIN [Concomitant]
     Active Substance: TAMSULOSIN
  15. ROPINIROLE [Concomitant]
     Active Substance: ROPINIROLE
  16. FENOFIBRATE [Concomitant]
     Active Substance: FENOFIBRATE
  17. METOPROLOL SUCCINATE [Concomitant]
     Active Substance: METOPROLOL SUCCINATE
  18. GABAPENTIN [Concomitant]
     Active Substance: GABAPENTIN
  19. FERROUS SULFATE [Concomitant]
     Active Substance: FERROUS SULFATE
  20. ISOSORBIDE MONONITRATE [Concomitant]
     Active Substance: ISOSORBIDE MONONITRATE
  21. ALLOPURINOL [Concomitant]
     Active Substance: ALLOPURINOL
  22. NITROGLYCERIN [Concomitant]
     Active Substance: NITROGLYCERIN
  23. ZETIA [Concomitant]
     Active Substance: EZETIMIBE
  24. ATORVASTATIN CALCIUM [Concomitant]
     Active Substance: ATORVASTATIN CALCIUM
  25. FISH OIL [Concomitant]
     Active Substance: FISH OIL
  26. SODIUM CHLORIDE [Concomitant]
     Active Substance: SODIUM CHLORIDE
  27. LIDOCAINE [Concomitant]
     Active Substance: LIDOCAINE
  28. PROAIR DIGIHALER [Concomitant]
     Active Substance: ALBUTEROL SULFATE
  29. TRAZODONE HCL [Concomitant]
     Active Substance: TRAZODONE HYDROCHLORIDE
  30. ANORO ELLIPTA [Concomitant]
     Active Substance: UMECLIDINIUM BROMIDE\VILANTEROL TRIFENATATE
  31. LOVAZA [Concomitant]
     Active Substance: OMEGA-3-ACID ETHYL ESTERS
  32. OMEGA-3-ACID ETHYL ESTER [Concomitant]
     Active Substance: OMEGA-3-ACID ETHYL ESTERS
  33. ROPINIROLE HYDROCHLORIDE [Concomitant]
     Active Substance: ROPINIROLE HYDROCHLORIDE
  34. TAMSULOSIN HYDROCHLORIDE [Concomitant]
     Active Substance: TAMSULOSIN HYDROCHLORIDE

REACTIONS (6)
  - Urine output decreased [Unknown]
  - Electrolyte imbalance [Unknown]
  - Urinary tract infection [Unknown]
  - Dyspnoea [Unknown]
  - Weight fluctuation [Unknown]
  - Dialysis [Unknown]

NARRATIVE: CASE EVENT DATE: 20220101
